FAERS Safety Report 8080151 (Version 2)
Quarter: 2014Q1

REPORT INFORMATION
  Report Type: Spontaneous
  Country: US (occurrence: US)
  Receive Date: 20110808
  Receipt Date: 20140205
  Transmission Date: 20141002
  Serious: Yes (Death, Hospitalization)
  Sender: FDA-Public Use
  Company Number: US-GLAXOSMITHKLINE-A0839550A

PATIENT
  Age: 63 Year
  Sex: Male
  Weight: 95.5 kg

DRUGS (1)
  1. AVANDIA [Suspect]
     Indication: TYPE 2 DIABETES MELLITUS
     Dosage: 4MG PER DAY
     Route: 048
     Dates: start: 20060505, end: 20060922

REACTIONS (6)
  - Cardio-respiratory arrest [Fatal]
  - Myocardial infarction [Unknown]
  - Multi-organ failure [Unknown]
  - Cardiogenic shock [Unknown]
  - Septic shock [Unknown]
  - Condition aggravated [Unknown]
